FAERS Safety Report 21414214 (Version 1)
Quarter: 2022Q4

REPORT INFORMATION
  Report Type: Spontaneous
  Country: US (occurrence: US)
  Receive Date: 20221006
  Receipt Date: 20221006
  Transmission Date: 20230113
  Serious: No
  Sender: FDA-Public Use
  Company Number: US-AIMMUNE THERAPEUTICS, INC.-2022AIMT02571

PATIENT

DRUGS (4)
  1. ZENPEP [Suspect]
     Active Substance: PANCRELIPASE AMYLASE\PANCRELIPASE LIPASE\PANCRELIPASE PROTEASE
     Indication: Pancreatic failure
     Dosage: 25000 USP UNIT
     Route: 048
     Dates: start: 202209
  2. ZENPEP [Suspect]
     Active Substance: PANCRELIPASE AMYLASE\PANCRELIPASE LIPASE\PANCRELIPASE PROTEASE
     Dosage: 25000 USP UNIT, ONCE, LAST DOSE PRIOR TO EVENT
     Route: 048
     Dates: start: 202209, end: 202209
  3. PYRIDOSTIGMINE [Concomitant]
     Active Substance: PYRIDOSTIGMINE
     Indication: Myasthenia gravis
     Dosage: 60 MG, 4X/DAY
  4. ERRIN [NORETHISTERONE] [Concomitant]
     Indication: Contraception
     Dosage: 0.35 MG, 1X/DAY

REACTIONS (4)
  - Headache [Unknown]
  - Abdominal pain upper [Unknown]
  - Nausea [Unknown]
  - Diarrhoea [Unknown]

NARRATIVE: CASE EVENT DATE: 20220901
